FAERS Safety Report 5452399-5 (Version None)
Quarter: 2007Q3

REPORT INFORMATION
  Report Type: 
  Country: None (occurrence: None)
  Receive Date: 20070914
  Receipt Date: 20070911
  Transmission Date: 20080115
  Serious: Yes (Hospitalization)
  Sender: FDA-Public Use
  Company Number: US-BRISTOL-MYERS SQUIBB COMPANY-13903224

PATIENT
  Age: 57 Year
  Sex: Male
  Weight: 85 kg

DRUGS (2)
  1. CISPLATIN [Suspect]
     Indication: NEOPLASM MALIGNANT
     Dates: start: 20070820, end: 20070820
  2. RADIATION THERAPY [Suspect]
     Indication: NEOPLASM MALIGNANT
     Dosage: 2800 CGY

REACTIONS (6)
  - DEHYDRATION [None]
  - DYSPHAGIA [None]
  - ORAL PAIN [None]
  - PNEUMONIA [None]
  - PYREXIA [None]
  - STOMATITIS [None]
